FAERS Safety Report 4725344-5 (Version None)
Quarter: 2005Q3

REPORT INFORMATION
  Report Type: 
  Country: None (occurrence: None)
  Receive Date: 20050721
  Receipt Date: 20050610
  Transmission Date: 20060218
  Serious: No
  Sender: FDA-Public Use
  Company Number: 2005SP001354

PATIENT
  Age: 44 Year
  Sex: Male
  Weight: 90.7194 kg

DRUGS (4)
  1. LUNESTA [Suspect]
     Dosage: 2 MG; HS; ORAL,  4 MG; HS; ORAL,  2 MG; HS; ORAL,  4 MG; HS; ORAL
     Route: 048
     Dates: start: 20050601, end: 20050601
  2. LUNESTA [Suspect]
     Dosage: 2 MG; HS; ORAL,  4 MG; HS; ORAL,  2 MG; HS; ORAL,  4 MG; HS; ORAL
     Route: 048
     Dates: start: 20050604, end: 20050601
  3. LUNESTA [Suspect]
     Dosage: 2 MG; HS; ORAL,  4 MG; HS; ORAL,  2 MG; HS; ORAL,  4 MG; HS; ORAL
     Route: 048
     Dates: start: 20050603, end: 20050603
  4. LUNESTA [Suspect]
     Dosage: 2 MG; HS; ORAL,  4 MG; HS; ORAL,  2 MG; HS; ORAL,  4 MG; HS; ORAL
     Route: 048
     Dates: start: 20050601

REACTIONS (5)
  - DIZZINESS [None]
  - DRUG INEFFECTIVE [None]
  - DYSGEUSIA [None]
  - INSOMNIA [None]
  - REBOUND EFFECT [None]
